FAERS Safety Report 25434457 (Version 8)
Quarter: 2025Q3

REPORT INFORMATION
  Report Type: Spontaneous
  Country: US (occurrence: US)
  Receive Date: 20250613
  Receipt Date: 20250922
  Transmission Date: 20251020
  Serious: Yes (Other)
  Sender: PFIZER
  Company Number: US-PFIZER INC-202500118001

PATIENT
  Age: 79 Year
  Sex: Male

DRUGS (1)
  1. GENOTROPIN [Suspect]
     Active Substance: SOMATROPIN
     Indication: Hypopituitarism
     Dosage: 0.3 MG, DAILY INJECTIONS AT NIGHT

REACTIONS (8)
  - Immobile [Recovering/Resolving]
  - Condition aggravated [Recovering/Resolving]
  - Drug dose omission by device [Recovering/Resolving]
  - Asthenia [Recovering/Resolving]
  - Gait disturbance [Recovering/Resolving]
  - Device defective [Recovering/Resolving]
  - Device issue [Recovering/Resolving]
  - Device delivery system issue [Recovering/Resolving]

NARRATIVE: CASE EVENT DATE: 20250601
